FAERS Safety Report 5332410-2 (Version None)
Quarter: 2007Q2

REPORT INFORMATION
  Report Type: 
  Country: None (occurrence: None)
  Receive Date: 20070522
  Receipt Date: 20070522
  Transmission Date: 20071010
  Serious: Yes (Other)
  Sender: FDA-Public Use
  Company Number: None

PATIENT
  Age: 30 Year
  Sex: Female
  Weight: 86.1834 kg

DRUGS (2)
  1. MIRENA [Suspect]
     Indication: CONTRACEPTION
     Dates: start: 20040707, end: 20070511
  2. IBUPROFEN [Concomitant]

REACTIONS (7)
  - AMENORRHOEA [None]
  - BLOOD GLUCOSE INCREASED [None]
  - BLOOD PRESSURE SYSTOLIC INCREASED [None]
  - CHEST DISCOMFORT [None]
  - HEADACHE [None]
  - PALPITATIONS [None]
  - SCIATICA [None]
